FAERS Safety Report 6667868-X (Version None)
Quarter: 2010Q2

REPORT INFORMATION
  Report Type: 
  Country: None (occurrence: None)
  Receive Date: 20100401
  Receipt Date: 20100319
  Transmission Date: 20101027
  Serious: Yes (Hospitalization)
  Sender: FDA-Public Use
  Company Number: JP-SOLVAY-00310001314

PATIENT
  Age: 14 Year
  Sex: Female

DRUGS (6)
  1. LUVOX [Suspect]
     Indication: DEPRESSION
     Dosage: 50 MILLIGRAM(S) ORAL
     Route: 048
     Dates: start: 20091120, end: 20100211
  2. RISPERDAL [Suspect]
     Indication: DEPRESSION
     Dosage: 1 MILLIGRAM(S), ORAL
     Route: 048
     Dates: start: 20100210, end: 20100210
  3. RISPERDAL [Suspect]
     Indication: DEPRESSION
     Dosage: 1 MILLIGRAM(S), ORAL
     Route: 048
     Dates: start: 20091218, end: 20100211
  4. MEILAX (ETHYL LOFLAZEPATE) [Suspect]
     Indication: DEPRESSION
     Dosage: 1 MILLIGRAM(S), ORAL
     Route: 048
     Dates: start: 20100210, end: 20100210
  5. MEILAX (ETHYL LOFLAZEPATE) [Suspect]
     Indication: DEPRESSION
     Dosage: 1 MILLIGRAM(S), ORAL
     Route: 048
     Dates: start: 20091120, end: 20100211
  6. IBUPROFEN TABLETS [Concomitant]

REACTIONS (2)
  - INTENTIONAL OVERDOSE [None]
  - SUICIDE ATTEMPT [None]
